FAERS Safety Report 7244298-3 (Version None)
Quarter: 2011Q1

REPORT INFORMATION
  Report Type: 
  Country: None (occurrence: None)
  Receive Date: 20110125
  Receipt Date: 20110124
  Transmission Date: 20110831
  Serious: Yes (Other)
  Sender: FDA-Public Use
  Company Number: US-B.I. PHARMACEUTICALS,INC./RIDGEFIELD-2010-BP-15281BP

PATIENT
  Sex: Female

DRUGS (13)
  1. PRADAXA [Suspect]
     Indication: ATRIAL FIBRILLATION
     Dosage: 300 MG
     Route: 048
     Dates: start: 20101101
  2. PRADAXA [Suspect]
     Indication: HYPERTENSION
  3. CLONIDINE [Concomitant]
     Indication: HYPERTENSION
  4. ULTRAM [Concomitant]
     Indication: PAIN
  5. VALTURNA [Concomitant]
     Dates: start: 20101001
  6. COREG [Concomitant]
     Dates: start: 20101101
  7. AMIODARONE HCL [Concomitant]
     Dates: start: 20101101
  8. HYDROCHLOROTHIAZIDE [Concomitant]
     Dates: start: 20101101
  9. HYDRALAZINE HCL [Concomitant]
  10. ULTRAM [Concomitant]
     Indication: HERPES ZOSTER
  11. RESTORIL [Concomitant]
     Indication: INSOMNIA
  12. LISINOPRIL [Concomitant]
  13. PRILOSEC [Concomitant]

REACTIONS (7)
  - DYSPEPSIA [None]
  - HYPERTENSION [None]
  - HEART RATE IRREGULAR [None]
  - OEDEMA PERIPHERAL [None]
  - BLOOD PRESSURE DECREASED [None]
  - ABDOMINAL PAIN [None]
  - HEART RATE DECREASED [None]
